FAERS Safety Report 7816270-3 (Version None)
Quarter: 2011Q4

REPORT INFORMATION
  Report Type: 
  Country: None (occurrence: None)
  Receive Date: 20111016
  Receipt Date: 20111007
  Transmission Date: 20120403
  Serious: Yes (Hospitalization)
  Sender: FDA-Public Use
  Company Number: US-BRISTOL-MYERS SQUIBB COMPANY-16143281

PATIENT
  Age: 72 Year
  Sex: Male
  Weight: 68 kg

DRUGS (7)
  1. BELATACEPT [Suspect]
     Indication: RENAL TRANSPLANT
     Route: 042
     Dates: start: 20060616, end: 20111001
  2. ATENOLOL [Concomitant]
     Route: 048
  3. HUMULIN 70/30 [Concomitant]
     Dosage: 1DF=20UNITS BEFORE BREAKFAST ALSO 17UNITS AFTER DINNER.PEN
     Route: 058
  4. MYCOPHENOLATE MOFETIL [Suspect]
     Route: 048
     Dates: end: 20111005
  5. FERROUS SULFATE TAB [Concomitant]
     Dosage: 65MG.TAB
     Route: 048
  6. LISINOPRIL [Concomitant]
     Route: 048
  7. PREDNISONE [Suspect]
     Dosage: TAB
     Route: 048

REACTIONS (2)
  - MENINGITIS CRYPTOCOCCAL [None]
  - DEMENTIA [None]
